FAERS Safety Report 14007215 (Version 1)
Quarter: 2017Q3

REPORT INFORMATION
  Report Type: Spontaneous
  Country: US (occurrence: US)
  Receive Date: 20170925
  Receipt Date: 20170925
  Transmission Date: 20171128
  Serious: Yes (Hospitalization, Other)
  Sender: FDA-Public Use
  Company Number: US-AUROBINDO-AUR-APL-2017-40759

PATIENT
  Age: 18 Year
  Sex: Female

DRUGS (3)
  1. ACETAMINOPHEN. [Suspect]
     Active Substance: ACETAMINOPHEN
     Indication: PRODUCT USED FOR UNKNOWN INDICATION
     Route: 065
  2. MIDOL /06880501/ [Suspect]
     Active Substance: ACETAMINOPHEN\IBUPROFEN
     Indication: PRODUCT USED FOR UNKNOWN INDICATION
     Route: 065
  3. IRON [Suspect]
     Active Substance: IRON
     Indication: PRODUCT USED FOR UNKNOWN INDICATION
     Route: 065

REACTIONS (17)
  - Encephalopathy [Recovered/Resolved]
  - Nausea [Recovered/Resolved]
  - Cholestasis [Recovered/Resolved]
  - Vomiting [Recovered/Resolved]
  - Drug-induced liver injury [None]
  - Thrombocytopenia [Recovered/Resolved]
  - Surgical procedure repeated [None]
  - Renal failure [Recovered/Resolved]
  - Hepatocellular injury [Recovered/Resolved]
  - Hepatitis [Recovered/Resolved]
  - Liver injury [Recovered/Resolved]
  - Post procedural haemorrhage [None]
  - Seizure [Recovered/Resolved]
  - Bacteraemia [Recovered/Resolved]
  - Abdominal tenderness [Recovered/Resolved]
  - Liver transplant [None]
  - Dialysis [None]
